FAERS Safety Report 18359475 (Version 1)
Quarter: 2020Q4

REPORT INFORMATION
  Report Type: Spontaneous
  Country: US (occurrence: US)
  Receive Date: 20201001
  Receipt Date: 20201001
  Transmission Date: 20210114
  Serious: Yes (Death)
  Sender: FDA-Public Use
  Company Number: None

PATIENT
  Age: 3 Decade
  Sex: Female

DRUGS (3)
  1. AMIKACIN. [Suspect]
     Active Substance: AMIKACIN
  2. REMDESIVIR. [Suspect]
     Active Substance: REMDESIVIR
     Indication: COVID-19
     Route: 042
     Dates: start: 2020
  3. PREDNISONE. [Suspect]
     Active Substance: PREDNISONE

REACTIONS (6)
  - Off label use [None]
  - Exposure during pregnancy [None]
  - Vertical infection transmission [None]
  - Maternal condition affecting foetus [None]
  - Premature labour [None]
  - Peritoneal dialysis [None]
